FAERS Safety Report 9457425 (Version 1)
Quarter: 2013Q3

REPORT INFORMATION
  Report Type: Spontaneous
  Country: FR (occurrence: None)
  Receive Date: 20130812
  Receipt Date: 20130812
  Transmission Date: 20140515
  Serious: Yes (Hospitalization, Other)
  Sender: FDA-Public Use
  Company Number: SYM-2013-08162

PATIENT
  Age: 80 Year
  Sex: Male

DRUGS (5)
  1. TARGRETIN [Suspect]
     Indication: MYCOSIS FUNGOIDES
     Dosage: 2 IN 1 D
     Route: 048
     Dates: start: 201011, end: 20130601
  2. ADRIAMYCINE [Suspect]
     Indication: PRODUCT USED FOR UNKNOWN INDICATION
     Dates: start: 201104
  3. CYCLOPHOSPHAMIDE [Suspect]
     Indication: PRODUCT USED FOR UNKNOWN INDICATION
     Dates: start: 201104
  4. VINCRISTINE [Suspect]
     Indication: PRODUCT USED FOR UNKNOWN INDICATION
     Dates: start: 201104
  5. PREDNISONE [Suspect]
     Indication: PRODUCT USED FOR UNKNOWN INDICATION
     Dates: start: 201104

REACTIONS (4)
  - Hypothyroidism [None]
  - Serum ferritin increased [None]
  - Anaemia macrocytic [None]
  - Hepatic failure [None]
